FAERS Safety Report 25586561 (Version 1)
Quarter: 2025Q3

REPORT INFORMATION
  Report Type: Spontaneous
  Country: JP (occurrence: JP)
  Receive Date: 20250721
  Receipt Date: 20250721
  Transmission Date: 20251021
  Serious: Yes (Other)
  Sender: NEUROCRINE BIOSCIENCES
  Company Number: JP-MTPC-MTPC2025-0012723

PATIENT
  Sex: Female

DRUGS (1)
  1. VALBENAZINE [Suspect]
     Active Substance: VALBENAZINE
     Indication: Tardive dyskinesia
     Route: 048

REACTIONS (6)
  - Suicidal ideation [Unknown]
  - Dyskinesia [Unknown]
  - Dizziness [Unknown]
  - Gait disturbance [Unknown]
  - Insomnia [Unknown]
  - Dizziness [Unknown]
